FAERS Safety Report 5058486-8 (Version None)
Quarter: 2006Q3

REPORT INFORMATION
  Report Type: 
  Country: None (occurrence: None)
  Receive Date: 20060721
  Receipt Date: 20060711
  Transmission Date: 20061208
  Serious: Yes (Other)
  Sender: FDA-Public Use
  Company Number: US-JNJFOC-20060702127

PATIENT
  Sex: Female
  Weight: 58.06 kg

DRUGS (7)
  1. REMICADE [Suspect]
     Route: 042
  2. REMICADE [Suspect]
     Indication: RHEUMATOID ARTHRITIS
     Route: 042
  3. DURAGESIC-100 [Concomitant]
     Indication: PAIN
  4. LYRICA [Concomitant]
     Indication: NERVE INJURY
     Dosage: .75 MG AND .5 MG DAILY
  5. CYMBALTA [Concomitant]
     Indication: DEPRESSION
  6. FLUID PILLS [Concomitant]
     Indication: FLUID RETENTION
  7. PERCOCET [Concomitant]
     Indication: PAIN

REACTIONS (7)
  - NODULE ON EXTREMITY [None]
  - OEDEMA PERIPHERAL [None]
  - PARALYSIS [None]
  - PLANTAR ERYTHEMA [None]
  - PRURITUS [None]
  - SWELLING [None]
  - VISION BLURRED [None]
